FAERS Safety Report 7565355-8 (Version None)
Quarter: 2011Q2

REPORT INFORMATION
  Report Type: 
  Country: None (occurrence: None)
  Receive Date: 20110623
  Receipt Date: 20110614
  Transmission Date: 20111010
  Serious: No
  Sender: FDA-Public Use
  Company Number: US-BIOGENIDEC-2010BI022517

PATIENT
  Sex: Female

DRUGS (2)
  1. PAXIL [Concomitant]
     Indication: DEPRESSION
  2. TYSABRI [Suspect]
     Indication: MULTIPLE SCLEROSIS
     Route: 042
     Dates: start: 20091203

REACTIONS (13)
  - PERSONALITY CHANGE [None]
  - NASOPHARYNGITIS [None]
  - SLEEP DISORDER [None]
  - FUNGAL INFECTION [None]
  - URINARY TRACT INFECTION [None]
  - DISORIENTATION [None]
  - ASTHENIA [None]
  - VAGINAL INFECTION [None]
  - MEMORY IMPAIRMENT [None]
  - INCREASED TENDENCY TO BRUISE [None]
  - BLOOD PRESSURE SYSTOLIC DECREASED [None]
  - FATIGUE [None]
  - CONSTIPATION [None]
